FAERS Safety Report 4730092-1 (Version None)
Quarter: 2005Q3

REPORT INFORMATION
  Report Type: 
  Country: None (occurrence: None)
  Receive Date: 20050801
  Receipt Date: 20050719
  Transmission Date: 20060218
  Serious: Yes (Other)
  Sender: FDA-Public Use
  Company Number: HQWYE762102MAR05

PATIENT
  Age: 63 Year
  Sex: Female
  Weight: 110 kg

DRUGS (9)
  1. ENBREL [Suspect]
     Indication: RHEUMATOID ARTHRITIS
     Route: 058
     Dates: start: 20040701, end: 20041101
  2. ENBREL [Suspect]
     Route: 058
     Dates: start: 20050101, end: 20050207
  3. PREDNISOLONE [Concomitant]
     Route: 048
  4. ARAVA [Concomitant]
     Route: 048
  5. COAPROVEL [Concomitant]
     Route: 048
  6. ISOSORBIDE DINITRATE [Concomitant]
  7. ELTROXIN [Concomitant]
  8. PHENOBARBITAL [Concomitant]
  9. ANALGESICS [Concomitant]
     Route: 048

REACTIONS (7)
  - COUGH [None]
  - ERYTHEMA [None]
  - FACE OEDEMA [None]
  - OEDEMA PERIPHERAL [None]
  - RESPIRATORY DISTRESS [None]
  - RHINITIS [None]
  - SKIN INDURATION [None]
